FAERS Safety Report 4526343-9 (Version None)
Quarter: 2004Q4

REPORT INFORMATION
  Report Type: 
  Country: None (occurrence: None)
  Receive Date: 20041210
  Receipt Date: 20041201
  Transmission Date: 20050328
  Serious: No
  Sender: FDA-Public Use
  Company Number: 2004103730

PATIENT
  Age: 35 Year
  Sex: Male

DRUGS (2)
  1. CARDURA XL [Suspect]
     Indication: BLOOD PRESSURE INCREASED
     Dosage: 4 MG (4 MG, 1 IN 1 D), ORAL
     Route: 048
  2. ANTIHYPERTENSIVES (ANTIHYPERTENSIVES) [Concomitant]

REACTIONS (4)
  - CIRCULATORY COLLAPSE [None]
  - CONTUSION [None]
  - FALL [None]
  - ORTHOSTATIC HYPOTENSION [None]
